FAERS Safety Report 16902869 (Version 1)
Quarter: 2019Q4

REPORT INFORMATION
  Report Type: Spontaneous
  Country: RO (occurrence: RO)
  Receive Date: 20191010
  Receipt Date: 20191010
  Transmission Date: 20200122
  Serious: Yes (Hospitalization)
  Sender: FDA-Public Use
  Company Number: RO-ROCHE-2424213

PATIENT
  Age: 52 Year
  Sex: Male

DRUGS (6)
  1. FLUDARA [Concomitant]
     Active Substance: FLUDARABINE PHOSPHATE
     Indication: CHRONIC LYMPHOCYTIC LEUKAEMIA
     Route: 065
     Dates: start: 201104
  2. IMATINIB. [Concomitant]
     Active Substance: IMATINIB MESYLATE
     Dosage: 1CPR / DAY
     Route: 065
  3. RITUXIMAB. [Suspect]
     Active Substance: RITUXIMAB
     Indication: CHRONIC LYMPHOCYTIC LEUKAEMIA
     Route: 065
     Dates: start: 201104
  4. CYCLOPHOSPHAMIDE. [Concomitant]
     Active Substance: CYCLOPHOSPHAMIDE
     Indication: CHRONIC LYMPHOCYTIC LEUKAEMIA
     Route: 065
     Dates: start: 201104
  5. GAZYVA [Concomitant]
     Active Substance: OBINUTUZUMAB
     Route: 042
  6. CHLORAMBUCIL [Concomitant]
     Active Substance: CHLORAMBUCIL

REACTIONS (4)
  - Cardiac disorder [Unknown]
  - Anaemia [Unknown]
  - Prostatic abscess [Unknown]
  - Respiratory tract infection [Unknown]

NARRATIVE: CASE EVENT DATE: 2014
